FAERS Safety Report 11704761 (Version 2)
Quarter: 2015Q4

REPORT INFORMATION
  Report Type: Spontaneous
  Country: US (occurrence: US)
  Receive Date: 20151106
  Receipt Date: 20151106
  Transmission Date: 20160304
  Serious: Yes (Other)
  Sender: FDA-Public Use
  Company Number: US-GLAXOSMITHKLINE-US2015GSK157923

PATIENT
  Sex: Female

DRUGS (4)
  1. SUMATRIPTAN TABLET [Suspect]
     Active Substance: SUMATRIPTAN
     Indication: MIGRAINE
  2. IMITREX [Suspect]
     Active Substance: SUMATRIPTAN\SUMATRIPTAN SUCCINATE
     Indication: MIGRAINE
     Dosage: 100 MG, UNK
  3. BOTOX [Suspect]
     Active Substance: ONABOTULINUMTOXINA
     Indication: MIGRAINE
     Route: 042
  4. TOPAMAX [Suspect]
     Active Substance: TOPIRAMATE
     Indication: MIGRAINE
     Dosage: 100 MG, BID

REACTIONS (8)
  - Injury [Unknown]
  - Pain [Unknown]
  - Drug ineffective [Unknown]
  - Inability to afford medication [Unknown]
  - Adverse drug reaction [Unknown]
  - Road traffic accident [Unknown]
  - Apparent death [Unknown]
  - Vomiting [Unknown]

NARRATIVE: CASE EVENT DATE: 200410
